FAERS Safety Report 9383466 (Version 1)
Quarter: 2013Q3

REPORT INFORMATION
  Report Type: Spontaneous
  Country: US (occurrence: US)
  Receive Date: 20130704
  Receipt Date: 20130704
  Transmission Date: 20140515
  Serious: Yes (Death)
  Sender: FDA-Public Use
  Company Number: US-PFIZER INC-2013196219

PATIENT
  Age: 71 Year
  Sex: Male

DRUGS (6)
  1. SUTENT [Suspect]
     Indication: PANCREATIC CARCINOMA
     Dosage: 25 MG, UNK
     Dates: start: 20130515
  2. AVODART [Concomitant]
     Dosage: UNK
  3. CARVEDILOL [Concomitant]
     Dosage: UNK
  4. COREG [Concomitant]
     Dosage: UNK
  5. LANTUS SOLOSTAR [Concomitant]
     Dosage: UNK
  6. LISINOPRIL [Concomitant]
     Dosage: UNK

REACTIONS (1)
  - Death [Fatal]
